FAERS Safety Report 14550474 (Version 1)
Quarter: 2018Q1

REPORT INFORMATION
  Report Type: Report from Study
  Country: US (occurrence: US)
  Receive Date: 20180219
  Receipt Date: 20180219
  Transmission Date: 20180509
  Serious: No
  Sender: FDA-Public Use
  Company Number: US-ACADIA PHARMACEUTICALS INC.-ACA-2018-007177

PATIENT
  Age: 75 Year
  Sex: Male

DRUGS (2)
  1. OLANZAPINE. [Suspect]
     Active Substance: OLANZAPINE
     Indication: PRODUCT USED FOR UNKNOWN INDICATION
     Route: 065
  2. NUPLAZID [Suspect]
     Active Substance: PIMAVANSERIN TARTRATE
     Indication: PARKINSON^S DISEASE
     Dosage: 51 MG, QD
     Route: 048
     Dates: start: 20170526

REACTIONS (4)
  - Dementia [Unknown]
  - Agitation [Unknown]
  - Aggression [Unknown]
  - Overdose [Unknown]

NARRATIVE: CASE EVENT DATE: 20170526
